FAERS Safety Report 11043211 (Version 1)
Quarter: 2015Q2

REPORT INFORMATION
  Report Type: Spontaneous
  Country: US (occurrence: US)
  Receive Date: 20150417
  Receipt Date: 20150417
  Transmission Date: 20150821
  Serious: Yes (Other)
  Sender: FDA-Public Use
  Company Number: US-MYLANLABS-2015M1012258

PATIENT

DRUGS (3)
  1. CISPLATIN. [Suspect]
     Active Substance: CISPLATIN
     Indication: HEPATOBLASTOMA
     Dosage: UNK, CYCLIC NEOADJUVANT
  2. VINCRISTINE [Suspect]
     Active Substance: VINCRISTINE
     Indication: HEPATOBLASTOMA
  3. FLUOROURACIL. [Suspect]
     Active Substance: FLUOROURACIL
     Indication: HEPATOBLASTOMA
     Dosage: UNK, CYCLIC NEOADJUVANT

REACTIONS (12)
  - Device related infection [Unknown]
  - Anaemia [Unknown]
  - Speech disorder [Unknown]
  - Fractured sacrum [Unknown]
  - Staphylococcal sepsis [Unknown]
  - Febrile neutropenia [Unknown]
  - Femur fracture [Unknown]
  - Hypercalcaemia [Unknown]
  - Deafness bilateral [Not Recovered/Not Resolved]
  - Thrombocytopenia [Unknown]
  - Metabolic acidosis [Unknown]
  - Hyperglycaemia [Unknown]
